FAERS Safety Report 10232636 (Version 2)
Quarter: 2014Q3

REPORT INFORMATION
  Report Type: Spontaneous
  Country: DE (occurrence: DE)
  Receive Date: 20140612
  Receipt Date: 20140801
  Transmission Date: 20150326
  Serious: Yes (Other)
  Sender: FDA-Public Use
  Company Number: DE-PFIZER INC-2014160577

PATIENT
  Sex: Male

DRUGS (1)
  1. ZELDOX [Suspect]
     Active Substance: ZIPRASIDONE
     Dosage: 40 MG, 2X/DAY
     Dates: start: 2013

REACTIONS (5)
  - Fatigue [Unknown]
  - Impatience [Unknown]
  - Drug ineffective [Unknown]
  - Drug dependence [Unknown]
  - Agitation [Unknown]
